FAERS Safety Report 10430265 (Version 2)
Quarter: 2014Q3

REPORT INFORMATION
  Report Type: Spontaneous
  Country: GB (occurrence: None)
  Receive Date: 20140902
  Receipt Date: 20140924
  Transmission Date: 20150326
  Serious: Yes (Other)
  Sender: FDA-Public Use
  Company Number: 2507666

PATIENT
  Age: 54 Year
  Sex: Female

DRUGS (3)
  1. DEFLAZACORT [Concomitant]
     Active Substance: DEFLAZACORT
  2. METHOTREXATE [Suspect]
     Active Substance: METHOTREXATE
     Indication: PRODUCT USED FOR UNKNOWN INDICATION
     Dosage: 7.5 MG MILLIGRAM(S), 1 WEEK
     Dates: start: 20130627
  3. ABATACEPT [Suspect]
     Active Substance: ABATACEPT
     Indication: RHEUMATOID ARTHRITIS
     Dosage: 125 MG MILLIGRAM(S), 1 WEEK
     Route: 058
     Dates: start: 20130902, end: 20131125

REACTIONS (3)
  - Lung infection [None]
  - Pulmonary toxicity [None]
  - Pulmonary mass [None]
